FAERS Safety Report 5236726-X (Version None)
Quarter: 2007Q1

REPORT INFORMATION
  Report Type: 
  Country: None (occurrence: None)
  Receive Date: 20061208
  Receipt Date: 20050523
  Transmission Date: 20070707
  Serious: Yes (Other)
  Sender: FDA-Public Use
  Company Number: 2005UW07875

PATIENT
  Age: 65 Year
  Sex: Female
  Weight: 58.059 kg

DRUGS (3)
  1. CRESTOR [Suspect]
     Indication: BLOOD CHOLESTEROL INCREASED
     Dosage: 10 MG PO
     Route: 048
     Dates: start: 20050427, end: 20050508
  2. TOPROL-XL [Concomitant]
  3. PREMARIN [Concomitant]

REACTIONS (3)
  - DYSKINESIA [None]
  - MUSCULAR WEAKNESS [None]
  - MYALGIA [None]
